FAERS Safety Report 15790643 (Version 1)
Quarter: 2018Q4

REPORT INFORMATION
  Report Type: Spontaneous
  Country: US (occurrence: US)
  Receive Date: 20181213
  Receipt Date: 20181213
  Transmission Date: 20190205
  Serious: Yes (Hospitalization, Other)
  Sender: FDA-Public Use
  Company Number: None

PATIENT
  Age: 64 Year
  Sex: Male
  Weight: 92.53 kg

DRUGS (1)
  1. IBUPROFEN. [Suspect]
     Active Substance: IBUPROFEN
     Indication: PAIN
     Route: 048
     Dates: start: 20171106, end: 20171203

REACTIONS (5)
  - Melaena [None]
  - Mallory-Weiss syndrome [None]
  - Haematemesis [None]
  - Oesophagitis [None]
  - Duodenal ulcer [None]

NARRATIVE: CASE EVENT DATE: 20171205
